FAERS Safety Report 17182099 (Version 1)
Quarter: 2019Q4

REPORT INFORMATION
  Report Type: Spontaneous
  Country: PL (occurrence: PL)
  Receive Date: 20191220
  Receipt Date: 20191220
  Transmission Date: 20200122
  Serious: Yes (Hospitalization, Other)
  Sender: FDA-Public Use
  Company Number: PL-TEVA-2019-PL-1156873

PATIENT
  Sex: Female

DRUGS (3)
  1. FULVESTRANT. [Suspect]
     Active Substance: FULVESTRANT
     Route: 065
  2. LETROZOLE. [Suspect]
     Active Substance: LETROZOLE
     Route: 065
  3. PALBOCICLIB 125 MG [Suspect]
     Active Substance: PALBOCICLIB
     Route: 065

REACTIONS (3)
  - Dyspnoea [Unknown]
  - Neutropenia [Unknown]
  - Pleural effusion [Unknown]
